FAERS Safety Report 5618410-3 (Version None)
Quarter: 2008Q1

REPORT INFORMATION
  Report Type: 
  Country: None (occurrence: None)
  Receive Date: 20080207
  Receipt Date: 20080124
  Transmission Date: 20080703
  Serious: Yes (Hospitalization)
  Sender: FDA-Public Use
  Company Number: US-AMGEN-STX262413

PATIENT
  Sex: Female

DRUGS (2)
  1. ENBREL [Suspect]
     Indication: PSORIATIC ARTHROPATHY
     Route: 058
     Dates: start: 20030615
  2. ENBREL [Suspect]
     Indication: PSORIASIS

REACTIONS (2)
  - OSTEOARTHRITIS [None]
  - PSORIATIC ARTHROPATHY [None]
